FAERS Safety Report 21676478 (Version 1)
Quarter: 2022Q4

REPORT INFORMATION
  Report Type: Report from Study
  Country: US (occurrence: US)
  Receive Date: 20221202
  Receipt Date: 20221202
  Transmission Date: 20230113
  Serious: No
  Sender: FDA-Public Use
  Company Number: US-ABBVIE-4171022

PATIENT
  Sex: Male

DRUGS (4)
  1. HUMIRA [Suspect]
     Active Substance: ADALIMUMAB
     Indication: Psoriasis
     Route: 058
  2. Moderna [Concomitant]
     Indication: COVID-19 immunisation
     Dosage: FIRST SHOT, ADMINISTERED ONCE
     Route: 030
     Dates: start: 20210306, end: 20210306
  3. Moderna [Concomitant]
     Indication: COVID-19 immunisation
     Dosage: SECOND SHOT, ADMINISTERED ONCE
     Route: 030
     Dates: start: 20210406, end: 20210406
  4. Moderna [Concomitant]
     Indication: COVID-19 immunisation
     Dosage: THIRD SHOT/BOOSTER, ADMINISTERED ONCE
     Route: 030
     Dates: start: 20220328, end: 20220328

REACTIONS (1)
  - Psoriasis [Unknown]

NARRATIVE: CASE EVENT DATE: 20220101
